FAERS Safety Report 12534567 (Version 2)
Quarter: 2016Q3

REPORT INFORMATION
  Report Type: Spontaneous
  Country: None (occurrence: JP)
  Receive Date: 20160706
  Receipt Date: 20160721
  Transmission Date: 20161109
  Serious: Yes (Other)
  Sender: FDA-Public Use
  Company Number: JP-ALLERGAN-1661997US

PATIENT
  Age: 25 Year
  Sex: Female
  Weight: 45 kg

DRUGS (1)
  1. MESALAZINE UNK [Suspect]
     Active Substance: MESALAMINE
     Indication: COLITIS ULCERATIVE
     Dosage: UNK
     Route: 048
     Dates: start: 20031215, end: 20040108

REACTIONS (4)
  - Pleural effusion [Recovering/Resolving]
  - Lung disorder [Recovering/Resolving]
  - Pneumonia [Recovered/Resolved]
  - Hypoxia [Recovered/Resolved]
